FAERS Safety Report 6251908-6 (Version None)
Quarter: 2009Q2

REPORT INFORMATION
  Report Type: 
  Country: None (occurrence: None)
  Receive Date: 20090629
  Receipt Date: 20090619
  Transmission Date: 20091009
  Serious: Yes (Other)
  Sender: FDA-Public Use
  Company Number: 2009SP010992

PATIENT
  Age: 39 Year
  Sex: Male
  Weight: 80 kg

DRUGS (4)
  1. DESLORATADINE [Suspect]
     Indication: POSTOPERATIVE CARE
     Dosage: 5 MG, QD;
     Dates: start: 20090514, end: 20090518
  2. DESLORATADINE [Suspect]
     Indication: RHINITIS ALLERGIC
     Dosage: 5 MG, QD;
     Dates: start: 20090514, end: 20090518
  3. AMPICILLIN [Concomitant]
  4. OINTMENT [Concomitant]

REACTIONS (6)
  - INFLAMMATION [None]
  - OVERDOSE [None]
  - PAIN IN EXTREMITY [None]
  - RASH GENERALISED [None]
  - RASH PUSTULAR [None]
  - TENDON DISORDER [None]
